FAERS Safety Report 24293482 (Version 1)
Quarter: 2024Q3

REPORT INFORMATION
  Report Type: Spontaneous
  Country: US (occurrence: None)
  Receive Date: 20240906
  Receipt Date: 20240906
  Transmission Date: 20241016
  Serious: No
  Sender: DOMPE FARMACEUTICI
  Company Number: US-FARMAPROD-202308-202401-0163

PATIENT
  Sex: Female
  Weight: 51.53 kg

DRUGS (24)
  1. OXERVATE [Suspect]
     Active Substance: CENEGERMIN-BKBJ
     Indication: Neurotrophic keratopathy
     Route: 047
     Dates: start: 20231226
  2. ARTIFICIAL TEARS [Concomitant]
  3. DEFINITY [Concomitant]
     Active Substance: PERFLUTREN
     Dosage: VIAL
  4. FISH OIL [Concomitant]
     Active Substance: FISH OIL
     Dosage: 100-160 MILLIGRAMS
  5. VITAMINS [Concomitant]
     Active Substance: VITAMINS
  6. GLUCOSAMINE-CHONDROITIN-MSM [Concomitant]
  7. MELOXICAM [Concomitant]
     Active Substance: MELOXICAM
  8. LORAZEPAM [Concomitant]
     Active Substance: LORAZEPAM
  9. CRANBERRY [Concomitant]
     Active Substance: CRANBERRY
  10. VITAMIN D-400 [Concomitant]
  11. VITAMIN B COMPLEX [Concomitant]
     Active Substance: CYANOCOBALAMIN\DEXPANTHENOL\NIACINAMIDE\PYRIDOXINE HYDROCHLORIDE\RIBOFLAVIN 5^-PHOSPHATE SODIUM\THIA
  12. VITAMIN E [Concomitant]
     Active Substance: .ALPHA.-TOCOPHEROL
  13. COENZYME Q10 [Concomitant]
     Active Substance: DIETARY SUPPLEMENT\UBIDECARENONE
  14. CARVEDILOL [Concomitant]
     Active Substance: CARVEDILOL
  15. FERROUS SULFATE [Concomitant]
     Active Substance: FERROUS SULFATE
     Dosage: 325(65)
  16. ASPIRIN [Concomitant]
     Active Substance: ASPIRIN
  17. ATORVASTATIN CALCIUM [Concomitant]
     Active Substance: ATORVASTATIN CALCIUM
  18. BIOTIN [Concomitant]
     Active Substance: BIOTIN
  19. FLAXSEED [Concomitant]
     Active Substance: FLAX SEED
  20. RESTASIS [Concomitant]
     Active Substance: CYCLOSPORINE
  21. FUROSEMIDE [Concomitant]
     Active Substance: FUROSEMIDE
  22. TRAMADOL HYDROCHLORIDE [Concomitant]
     Active Substance: TRAMADOL HYDROCHLORIDE
  23. MELATONIN [Concomitant]
     Active Substance: MELATONIN
  24. AMITRIPTYLINE HYDROCHLORIDE [Concomitant]
     Active Substance: AMITRIPTYLINE HYDROCHLORIDE

REACTIONS (1)
  - Wrong technique in product usage process [Unknown]
